FAERS Safety Report 7334898-4 (Version None)
Quarter: 2011Q1

REPORT INFORMATION
  Report Type: 
  Country: None (occurrence: None)
  Receive Date: 20110307
  Receipt Date: 20110225
  Transmission Date: 20110831
  Serious: Yes (Hospitalization)
  Sender: FDA-Public Use
  Company Number: IT-TEVA-269716ISR

PATIENT
  Sex: Female

DRUGS (7)
  1. FLUOROURACIL [Suspect]
     Indication: RECTOSIGMOID CANCER
     Dosage: 2350 MG
     Route: 042
     Dates: start: 20100823, end: 20110126
  2. OXALIPLATIN [Suspect]
     Indication: RECTOSIGMOID CANCER
     Dosage: 125 MG
     Route: 042
     Dates: start: 20100823, end: 20110124
  3. GRANISETRON HCL [Concomitant]
  4. 5-METHYLTETRAHYDROFOLATE (PREFOLIC) [Concomitant]
  5. ONDANSETRON [Concomitant]
  6. DEXAMETHASONE SODIUM PHOSPHATE [Concomitant]
  7. OMEPRAZOLE [Concomitant]

REACTIONS (1)
  - HEPATITIS [None]
